FAERS Safety Report 16249278 (Version 1)
Quarter: 2019Q2

REPORT INFORMATION
  Report Type: Spontaneous
  Country: IT (occurrence: IT)
  Receive Date: 20190429
  Receipt Date: 20190429
  Transmission Date: 20190711
  Serious: Yes (Other)
  Sender: FDA-Public Use
  Company Number: IT-ASPEN-GLO2019IT004200

PATIENT
  Sex: Female

DRUGS (1)
  1. DESOGESTREL, ETHINYLESTRADIOL [Suspect]
     Active Substance: DESOGESTREL
     Indication: HYPOGONADISM FEMALE
     Route: 065

REACTIONS (3)
  - Product use in unapproved indication [Unknown]
  - Diabetes mellitus [Unknown]
  - Off label use [Unknown]
